FAERS Safety Report 21302231 (Version 13)
Quarter: 2024Q2

REPORT INFORMATION
  Report Type: Spontaneous
  Country: US (occurrence: US)
  Receive Date: 20220907
  Receipt Date: 20240412
  Transmission Date: 20240716
  Serious: No
  Sender: FDA-Public Use
  Company Number: US-PFIZER INC-PV202200058691

PATIENT
  Age: 58 Year
  Sex: Female
  Weight: 120.64 kg

DRUGS (7)
  1. IBRANCE [Suspect]
     Active Substance: PALBOCICLIB
     Indication: Breast cancer metastatic
     Dosage: 125 MG, 1X/DAY
     Dates: start: 20220601
  2. IBRANCE [Suspect]
     Active Substance: PALBOCICLIB
     Indication: Breast cancer female
     Dosage: TAKE 1 TABLET (125 MG) DAILY FOR 21 DAYS OUT OF A 28 DAY CYCLE
     Route: 048
  3. GABAPENTIN [Concomitant]
     Active Substance: GABAPENTIN
     Indication: Pain
     Dosage: 700 MG, 3X/DAY
     Dates: start: 20220807
  4. VITAMIN E [Concomitant]
     Active Substance: .ALPHA.-TOCOPHEROL
     Indication: Hot flush
     Dosage: 180 MG, 2X/DAY
     Dates: start: 20220807
  5. BELBUCA [Concomitant]
     Active Substance: BUPRENORPHINE HYDROCHLORIDE
     Indication: Pain
     Dosage: 300 UG, 1X/DAY
     Dates: start: 20220701
  6. FULVESTRANT [Concomitant]
     Active Substance: FULVESTRANT
     Dosage: UNK
  7. ZOMETA [Concomitant]
     Active Substance: ZOLEDRONIC ACID
     Indication: Blood calcium abnormal
     Dosage: UNK

REACTIONS (16)
  - Nausea [Unknown]
  - Nail disorder [Not Recovered/Not Resolved]
  - Alopecia [Not Recovered/Not Resolved]
  - Hot flush [Not Recovered/Not Resolved]
  - Hypertension [Unknown]
  - Glucose tolerance impaired [Unknown]
  - White blood cell count decreased [Unknown]
  - Anaemia [Unknown]
  - Asthenia [Unknown]
  - Balance disorder [Unknown]
  - Anonychia [Unknown]
  - Hair texture abnormal [Unknown]
  - Nasopharyngitis [Unknown]
  - Cough [Unknown]
  - Feeding disorder [Unknown]
  - Madarosis [Unknown]

NARRATIVE: CASE EVENT DATE: 20221101
